FAERS Safety Report 9759653 (Version 2)
Quarter: 2013Q4

REPORT INFORMATION
  Report Type: Spontaneous
  Country: US (occurrence: US)
  Receive Date: 20131216
  Receipt Date: 20131216
  Transmission Date: 20140711
  Serious: No
  Sender: FDA-Public Use
  Company Number: US-GILEAD-2010-0028086

PATIENT
  Age: 79 Year
  Sex: Female
  Weight: 73.94 kg

DRUGS (13)
  1. LETAIRIS [Suspect]
     Indication: PULMONARY ARTERIAL HYPERTENSION
     Route: 048
     Dates: start: 20100303
  2. ASPIRIN [Concomitant]
  3. METOPROLOL [Concomitant]
  4. TRIAMTERENE- HCTZ [Concomitant]
  5. PROPAFENONE [Concomitant]
  6. LIPITOR [Concomitant]
  7. EFFEXOR [Concomitant]
  8. KLOR-CON [Concomitant]
  9. CALCIUM [Concomitant]
  10. FISH OIL [Concomitant]
  11. VITAMIN D [Concomitant]
  12. OMEGA 3 EPA+DHA [Concomitant]
  13. MULTIVITAMIN [Concomitant]

REACTIONS (2)
  - Gastric disorder [Unknown]
  - Abdominal pain upper [Recovering/Resolving]
